FAERS Safety Report 23961340 (Version 1)
Quarter: 2024Q2

REPORT INFORMATION
  Report Type: Other
  Country: DE (occurrence: None)
  Receive Date: 20240611
  Receipt Date: 20240611
  Transmission Date: 20240715
  Serious: Yes (Other)
  Sender: FDA-Public Use
  Company Number: DE-ROCHE-3577476

PATIENT
  Age: 85 Year
  Sex: Female
  Weight: 72 kg

DRUGS (2)
  1. PERJETA [Suspect]
     Active Substance: PERTUZUMAB
     Indication: Breast cancer
     Dosage: ON 03/NOV/2023, RECEIVED THE LAST DOSE PRIOR TO EVENT ONSET.
     Route: 065
     Dates: start: 20220202, end: 20240126
  2. HERZUMA [Suspect]
     Active Substance: TRASTUZUMAB-PKRB
     Indication: Breast cancer
     Dosage: ON 03/NOV/2023, RECEIVED THE MOST RECENT DOSE PRIOR TO EVENT.
     Route: 065

REACTIONS (1)
  - Polyneuropathy [Recovering/Resolving]

NARRATIVE: CASE EVENT DATE: 20231101
